FAERS Safety Report 9620988 (Version 2)
Quarter: 2013Q4

REPORT INFORMATION
  Report Type: Spontaneous
  Country: BR (occurrence: BR)
  Receive Date: 20131015
  Receipt Date: 20131111
  Transmission Date: 20140711
  Serious: Yes (Hospitalization, Other)
  Sender: FDA-Public Use
  Company Number: PHHY2013BR114838

PATIENT
  Sex: Female

DRUGS (1)
  1. DIOVAN HCT [Suspect]
     Dosage: 1 DF (VALS 320MG, HCTZ 12.5MG)

REACTIONS (8)
  - Dyskinesia [Recovering/Resolving]
  - Movement disorder [Recovering/Resolving]
  - Pain [Recovering/Resolving]
  - Back pain [Recovering/Resolving]
  - Weight increased [Recovering/Resolving]
  - Bruxism [Recovering/Resolving]
  - Abdominal distension [Recovering/Resolving]
  - Tooth fracture [Recovering/Resolving]
